FAERS Safety Report 18762466 (Version 1)
Quarter: 2021Q1

REPORT INFORMATION
  Report Type: Spontaneous
  Country: DE (occurrence: DE)
  Receive Date: 20210120
  Receipt Date: 20210120
  Transmission Date: 20210419
  Serious: Yes (Other)
  Sender: FDA-Public Use
  Company Number: NVSC2021DE010346

PATIENT
  Age: 32 Year
  Sex: Female

DRUGS (7)
  1. PENTASA [Suspect]
     Active Substance: MESALAMINE
     Dosage: 1000 MG, QD (SUPPOSITRIES)
     Route: 054
     Dates: start: 20191122, end: 20200819
  2. PREDNISOLONE. [Suspect]
     Active Substance: PREDNISOLONE
     Indication: COLITIS ULCERATIVE
     Dosage: 50 MG, QD (50 [MG/D (BIS 30 MG/D) ]) (12.6. ? 38.5. GESTATIONAL WEEK)
     Route: 048
     Dates: start: 20200220, end: 20200819
  3. PENTASA [Suspect]
     Active Substance: MESALAMINE
     Indication: COLITIS ULCERATIVE
     Dosage: 4000 MG, QD (0 TO 38.5 GESTATIONAL WEEK)
     Route: 048
     Dates: start: 20191122, end: 20200819
  4. MISOPROSTOL. [Concomitant]
     Active Substance: MISOPROSTOL
     Indication: LABOUR INDUCTION
     Dosage: (38.4 ? 38.4 GESTATIONAL WEEK)
     Route: 048
     Dates: start: 20200818, end: 20200818
  5. CORTIMENT [Concomitant]
     Indication: COLITIS ULCERATIVE
     Dosage: 9 MG, QD 11.1 ? 11.25 GENSTATIONAL WEEK)
     Route: 048
     Dates: start: 20200208, end: 20200219
  6. COLECALCIFEROL [Concomitant]
     Active Substance: CHOLECALCIFEROL
     Indication: OSTEOPOROSIS PROPHYLAXIS
     Dosage: 4000 IE, QD (11.1 ? 12.5 GESTATIONAL WEEK)
     Route: 048
     Dates: start: 20200220, end: 20200306
  7. CEFTRIAXON [Concomitant]
     Active Substance: CEFTRIAXONE
     Indication: BACTERIAL INFECTION
     Dosage: 38.4 ? 38.5 GESTATIONAL WEEK
     Route: 042
     Dates: start: 20200818, end: 20200819

REACTIONS (2)
  - Stillbirth [Unknown]
  - Maternal exposure during pregnancy [Unknown]
